FAERS Safety Report 8365377-3 (Version None)
Quarter: 2012Q2

REPORT INFORMATION
  Report Type: 
  Country: None (occurrence: None)
  Receive Date: 20120516
  Receipt Date: 20120511
  Transmission Date: 20120825
  Serious: Yes (Hospitalization, Other)
  Sender: FDA-Public Use
  Company Number: PH-MUTUAL PHARMACEUTICAL COMPANY, INC.-MTCD20120095

PATIENT
  Age: 52 Year
  Sex: Male
  Weight: 50 kg

DRUGS (2)
  1. METOCLOPRAMIDE [Suspect]
     Indication: HICCUPS
  2. METOCLOPRAMIDE [Suspect]
     Indication: NAUSEA
     Route: 030

REACTIONS (1)
  - TOXIC EPIDERMAL NECROLYSIS [None]
